FAERS Safety Report 15293142 (Version 1)
Quarter: 2018Q4

REPORT INFORMATION
  Report Type: Spontaneous
  Country: ES (occurrence: ES)
  Receive Date: 20180820
  Receipt Date: 20180820
  Transmission Date: 20190204
  Serious: Yes (Other)
  Sender: FDA-Public Use
  Company Number: ES-MERCK KGAA-2053923

PATIENT
  Age: 41 Year
  Sex: Female

DRUGS (2)
  1. COSLAN (MEFENAMIC ACID) [Suspect]
     Active Substance: MEFENAMIC ACID
  2. NOVOTHYROX [Suspect]
     Active Substance: LEVOTHYROXINE SODIUM
     Indication: PRODUCT USED FOR UNKNOWN INDICATION

REACTIONS (7)
  - Abdominal pain [Unknown]
  - Haemorrhage [Unknown]
  - Vulvovaginal discomfort [Unknown]
  - Micturition disorder [Unknown]
  - Adnexa uteri pain [Unknown]
  - Pain [Unknown]
  - Inflammation [Unknown]
